FAERS Safety Report 4826750-0 (Version None)
Quarter: 2005Q4

REPORT INFORMATION
  Report Type: 
  Country: None (occurrence: None)
  Receive Date: 20051111
  Receipt Date: 20051111
  Transmission Date: 20060501
  Serious: Yes (Hospitalization, Other)
  Sender: FDA-Public Use
  Company Number: None

PATIENT
  Sex: Female
  Weight: 31.7518 kg

DRUGS (4)
  1. TAXOL [Suspect]
     Indication: BREAST CANCER
     Dosage: 402 MG X 2 DOSES, THEN 322 MG X 4 DOSES, IV EVERY 2 WEEKS
     Route: 042
     Dates: start: 20050818, end: 20050818
  2. TAXOL [Suspect]
     Indication: BREAST CANCER
     Dosage: 402 MG X 2 DOSES, THEN 322 MG X 4 DOSES, IV EVERY 2 WEEKS
     Route: 042
     Dates: start: 20050602
  3. HEPARIN [Concomitant]
  4. LOVENOX [Concomitant]

REACTIONS (9)
  - ABDOMINAL PAIN [None]
  - ASTHENIA [None]
  - BLOOD FIBRINOGEN INCREASED [None]
  - DEEP VEIN THROMBOSIS [None]
  - HAEMATOMA [None]
  - HEMIPLEGIA [None]
  - HYPOAESTHESIA [None]
  - HYPOCOAGULABLE STATE [None]
  - SURGICAL PROCEDURE REPEATED [None]
